FAERS Safety Report 5174413-7 (Version None)
Quarter: 2006Q4

REPORT INFORMATION
  Report Type: 
  Country: None (occurrence: None)
  Receive Date: 20061214
  Receipt Date: 20061204
  Transmission Date: 20070319
  Serious: Yes (Death)
  Sender: FDA-Public Use
  Company Number: US-SANOFI-SYNTHELABO-A03200607257

PATIENT
  Sex: Male

DRUGS (2)
  1. ASPIRIN [Concomitant]
     Dosage: UNK
     Route: 048
  2. PLAVIX [Suspect]
     Indication: DRUG USE FOR UNKNOWN INDICATION
     Dosage: UNK
     Route: 048
     Dates: start: 20000921, end: 20001021

REACTIONS (2)
  - MYELOID LEUKAEMIA [None]
  - PLATELET COUNT DECREASED [None]
